FAERS Safety Report 24193004 (Version 2)
Quarter: 2024Q3

REPORT INFORMATION
  Report Type: Report from Study
  Country: CA (occurrence: CA)
  Receive Date: 20240809
  Receipt Date: 20240905
  Transmission Date: 20241016
  Serious: Yes (Other)
  Sender: TEVA
  Company Number: CA-TEVA-VS-3229145

PATIENT
  Age: 53 Year
  Sex: Male

DRUGS (3)
  1. OCTREOTIDE [Suspect]
     Active Substance: OCTREOTIDE\OCTREOTIDE ACETATE
     Indication: Pancreatic neuroendocrine tumour
     Route: 030
     Dates: start: 20220426
  2. OCTREOTIDE [Suspect]
     Active Substance: OCTREOTIDE\OCTREOTIDE ACETATE
     Indication: Pancreatic neuroendocrine tumour
     Route: 030
  3. SANDOSTATIN LAR DEPOT [Concomitant]
     Active Substance: OCTREOTIDE ACETATE
     Indication: Product used for unknown indication
     Route: 065

REACTIONS (4)
  - Scapula fracture [Unknown]
  - Accident [Unknown]
  - Limb injury [Unknown]
  - Rib fracture [Unknown]

NARRATIVE: CASE EVENT DATE: 20240701
